FAERS Safety Report 23472816 (Version 1)
Quarter: 2024Q1

REPORT INFORMATION
  Report Type: Spontaneous
  Country: CN (occurrence: CN)
  Receive Date: 20240203
  Receipt Date: 20240203
  Transmission Date: 20240410
  Serious: Yes (Other)
  Sender: FDA-Public Use
  Company Number: CN-MLMSERVICE-20240116-4776636-1

PATIENT
  Age: 29 Year
  Sex: Male

DRUGS (6)
  1. LEVETIRACETAM [Suspect]
     Active Substance: LEVETIRACETAM
     Indication: Mitochondrial encephalomyopathy
     Dosage: UNK
     Route: 065
  2. IDEBENONE [Suspect]
     Active Substance: IDEBENONE
     Indication: Mitochondrial encephalomyopathy
     Dosage: UNK
     Route: 065
  3. LORAZEPAM [Suspect]
     Active Substance: LORAZEPAM
     Indication: Mitochondrial encephalomyopathy
     Dosage: UNK
     Route: 065
  4. METHYLCOBALAMIN [Suspect]
     Active Substance: METHYLCOBALAMIN
     Indication: Mitochondrial encephalomyopathy
     Dosage: UNK
     Route: 065
  5. VITAMIN B2 [Suspect]
     Active Substance: RIBOFLAVIN
     Indication: Mitochondrial encephalomyopathy
     Dosage: UNK
     Route: 065
  6. VITAMIN E [Suspect]
     Active Substance: .ALPHA.-TOCOPHEROL
     Indication: Mitochondrial encephalomyopathy
     Dosage: LONG TERM USE
     Route: 065

REACTIONS (1)
  - Cataract nuclear [Recovered/Resolved]
